FAERS Safety Report 15864724 (Version 1)
Quarter: 2019Q1

REPORT INFORMATION
  Report Type: Spontaneous
  Country: US (occurrence: US)
  Receive Date: 20190124
  Receipt Date: 20190124
  Transmission Date: 20190417
  Serious: Yes (Other)
  Sender: FDA-Public Use
  Company Number: US-TEVA-2019-US-999956

PATIENT
  Sex: Female

DRUGS (2)
  1. DEXILANT [Concomitant]
     Active Substance: DEXLANSOPRAZOLE
     Route: 065
  2. METOCLOPRAMIDE TABLET [Suspect]
     Active Substance: METOCLOPRAMIDE
     Route: 065

REACTIONS (3)
  - Swelling face [Recovering/Resolving]
  - Lip swelling [Recovering/Resolving]
  - Hypoaesthesia [Unknown]

NARRATIVE: CASE EVENT DATE: 20190112
